FAERS Safety Report 9415620 (Version 2)
Quarter: 2013Q3

REPORT INFORMATION
  Report Type: Spontaneous
  Country: IT (occurrence: IT)
  Receive Date: 20130723
  Receipt Date: 20130802
  Transmission Date: 20140515
  Serious: Yes (Hospitalization)
  Sender: FDA-Public Use
  Company Number: CHPA2013IT011452

PATIENT
  Age: 72 Year
  Sex: Male

DRUGS (4)
  1. IBUPROFEN [Suspect]
     Indication: PAIN
     Dosage: 2 DF, QD
     Route: 048
     Dates: start: 20130601, end: 20130610
  2. TACHIDOL [Suspect]
     Indication: PAIN
     Dosage: 3 DF, QD
     Route: 048
     Dates: start: 20130605, end: 20130610
  3. MITTOVAL [Concomitant]
     Dosage: UNK, UNK
  4. AZARGA [Concomitant]
     Dosage: UNK, UNK
     Route: 047

REACTIONS (3)
  - Asthenia [Recovered/Resolved]
  - Haemolysis [Recovered/Resolved]
  - Pancytopenia [Recovered/Resolved]
